FAERS Safety Report 9248039 (Version 1)
Quarter: 2013Q2

REPORT INFORMATION
  Report Type: Spontaneous
  Country: US (occurrence: None)
  Receive Date: 20130419
  Receipt Date: 20130419
  Transmission Date: 20140414
  Serious: Yes (Other)
  Sender: FDA-Public Use
  Company Number: None

PATIENT
  Age: 48 Year
  Sex: Female
  Weight: 95 kg

DRUGS (4)
  1. ZYPREXA [Suspect]
     Indication: ANXIETY
     Dates: start: 20110925, end: 20130402
  2. FLUVOXAMINE [Concomitant]
  3. MICARDIS TELMISARTAN [Concomitant]
  4. DIAZEPAM [Concomitant]

REACTIONS (1)
  - Insomnia [None]
